FAERS Safety Report 23969868 (Version 1)
Quarter: 2024Q2

REPORT INFORMATION
  Report Type: Spontaneous
  Country: US (occurrence: None)
  Receive Date: 20240613
  Receipt Date: 20240613
  Transmission Date: 20240716
  Serious: No
  Sender: FDA-Public Use
  Company Number: 2024A134434

PATIENT
  Age: 58 Year
  Sex: Female
  Weight: 74.8 kg

DRUGS (11)
  1. FASENRA [Suspect]
     Active Substance: BENRALIZUMAB
     Indication: Asthma
     Route: 058
     Dates: start: 20230814
  2. ZOCOR [Concomitant]
     Active Substance: SIMVASTATIN
  3. SIMVASTATIN [Concomitant]
     Active Substance: SIMVASTATIN
  4. EZETIMIBE [Concomitant]
     Active Substance: EZETIMIBE
  5. MONTELUKAST [Concomitant]
     Active Substance: MONTELUKAST SODIUM
  6. SYNTHROID [Concomitant]
     Active Substance: LEVOTHYROXINE SODIUM
  7. TESSALON [Concomitant]
     Active Substance: BENZONATATE
  8. TRELEGY ELLIPTA [Concomitant]
     Active Substance: FLUTICASONE FUROATE\UMECLIDINIUM BROMIDE\VILANTEROL TRIFENATATE
  9. LEVALBUTEROL [Concomitant]
     Active Substance: LEVALBUTEROL
  10. AMARYL [Concomitant]
     Active Substance: GLIMEPIRIDE
  11. ZOCOR [Concomitant]
     Active Substance: SIMVASTATIN

REACTIONS (1)
  - Fatigue [Recovered/Resolved]

NARRATIVE: CASE EVENT DATE: 20240422
